FAERS Safety Report 4907123-9 (Version None)
Quarter: 2006Q1

REPORT INFORMATION
  Report Type: 
  Country: None (occurrence: None)
  Receive Date: 20060206
  Receipt Date: 20060123
  Transmission Date: 20060701
  Serious: Yes (Hospitalization, Other)
  Sender: FDA-Public Use
  Company Number: 2005160106

PATIENT
  Age: 70 Year
  Sex: Male
  Weight: 71 kg

DRUGS (5)
  1. LIPITOR [Suspect]
     Indication: DYSLIPIDAEMIA
     Dosage: 10 MG (10 MG, 1 IN 1 D), ORAL
     Route: 048
     Dates: start: 20020901
  2. ASPIRIN [Concomitant]
  3. PLAQUETIC (TICLOPIDINE) [Concomitant]
  4. AMLODIPINE BESILATE (AMLODIPINE) [Concomitant]
  5. SUSTRATE (PROPATYLNITRATE) [Concomitant]

REACTIONS (5)
  - CORONARY ARTERY OCCLUSION [None]
  - HAEMATOMA [None]
  - MYOCARDIAL ISCHAEMIA [None]
  - TREATMENT NONCOMPLIANCE [None]
  - WEIGHT DECREASED [None]
